FAERS Safety Report 23362788 (Version 1)
Quarter: 2024Q1

REPORT INFORMATION
  Report Type: Spontaneous
  Country: US (occurrence: US)
  Receive Date: 20240103
  Receipt Date: 20240103
  Transmission Date: 20240410
  Serious: Yes (Other)
  Sender: FDA-Public Use
  Company Number: US-PFIZER INC-202300451627

PATIENT
  Age: 79 Year
  Sex: Female
  Weight: 90.26 kg

DRUGS (3)
  1. CYTOMEL [Suspect]
     Active Substance: LIOTHYRONINE SODIUM
     Indication: Thyroid disorder
     Dosage: 5 MG, 1X/DAY
     Dates: start: 1983
  2. CYTOMEL [Suspect]
     Active Substance: LIOTHYRONINE SODIUM
     Dosage: 5 MG, 2X/DAY (TWO A DAY)
  3. LEVOTHYROXINE [Concomitant]
     Active Substance: LEVOTHYROXINE
     Dosage: 125MCG TABLET EVERY DAY PUT IN MOUTH AND TAKE A SIP OF WATER
     Route: 048

REACTIONS (4)
  - Sjogren^s syndrome [Not Recovered/Not Resolved]
  - Costochondritis [Not Recovered/Not Resolved]
  - Intentional product use issue [Unknown]
  - Product prescribing error [Unknown]
